FAERS Safety Report 4472961-6 (Version None)
Quarter: 2004Q4

REPORT INFORMATION
  Report Type: 
  Country: None (occurrence: None)
  Receive Date: 20041013
  Receipt Date: 20041006
  Transmission Date: 20050328
  Serious: Yes (Hospitalization)
  Sender: FDA-Public Use
  Company Number: CA-MERCK-0410CAN00181

PATIENT
  Age: 59 Year
  Sex: Male

DRUGS (4)
  1. NORVASC [Concomitant]
     Route: 065
     Dates: start: 20030101
  2. AVALIDE [Concomitant]
     Route: 065
     Dates: start: 20030101
  3. PAXIL [Concomitant]
     Indication: DEPRESSION
     Route: 065
  4. VIOXX [Suspect]
     Indication: SHOULDER OPERATION
     Route: 048

REACTIONS (2)
  - LOSS OF CONSCIOUSNESS [None]
  - PALPITATIONS [None]
